FAERS Safety Report 5062452-6 (Version None)
Quarter: 2006Q3

REPORT INFORMATION
  Report Type: 
  Country: None (occurrence: None)
  Receive Date: 20060721
  Receipt Date: 20060718
  Transmission Date: 20061208
  Serious: Yes (Hospitalization)
  Sender: FDA-Public Use
  Company Number: DK-2006-019370

PATIENT
  Age: 43 Year
  Sex: Female

DRUGS (2)
  1. LEVONORGESTREL [Suspect]
     Dosage: 20 UG/DAY, CONT, INTRA-UTERINE
     Route: 015
     Dates: start: 20060622
  2. ZYRTEC [Concomitant]

REACTIONS (5)
  - BLOOD PRESSURE INCREASED [None]
  - FEELING ABNORMAL [None]
  - HYPOAESTHESIA [None]
  - SENSORY DISTURBANCE [None]
  - WHITE BLOOD CELL COUNT INCREASED [None]
